FAERS Safety Report 5247676-7 (Version None)
Quarter: 2007Q1

REPORT INFORMATION
  Report Type: 
  Country: None (occurrence: None)
  Receive Date: 20070227
  Receipt Date: 20070207
  Transmission Date: 20070707
  Serious: Yes (Other)
  Sender: FDA-Public Use
  Company Number: AU-AVENTIS-200711038GDDC

PATIENT
  Age: 52 Year
  Sex: Female

DRUGS (9)
  1. ARAVA [Suspect]
     Route: 048
     Dates: start: 20000101, end: 20030301
  2. ARAVA [Suspect]
     Route: 048
     Dates: start: 20030301
  3. METHOTREXATE [Concomitant]
     Route: 048
  4. CELECOXIB [Concomitant]
     Route: 048
  5. PREDNISONE [Concomitant]
     Dosage: DOSE: UNK
  6. AVAPRO [Concomitant]
     Dosage: DOSE: UNK
  7. VENLAFAXINE HCL [Concomitant]
     Dosage: DOSE: UNK
     Route: 048
  8. OXYCODONE HCL [Concomitant]
     Route: 048
  9. CHOLECALCIFEROL [Concomitant]
     Route: 048

REACTIONS (1)
  - LIVER FUNCTION TEST ABNORMAL [None]
